FAERS Safety Report 8606073-4 (Version None)
Quarter: 2012Q3

REPORT INFORMATION
  Report Type: 
  Country: None (occurrence: None)
  Receive Date: 20120820
  Receipt Date: 20120815
  Transmission Date: 20120928
  Serious: Yes (Other)
  Sender: FDA-Public Use
  Company Number: PHHY2012MX071531

PATIENT
  Sex: Female

DRUGS (2)
  1. DIOVAN HCT [Suspect]
     Indication: HYPERTENSION
     Dosage: 1 DF (320/12.5 MG), DAILY
     Dates: start: 20120301
  2. TENORMIN [Concomitant]
     Indication: PULSE ABNORMAL
     Dosage: 1 DF (UNKNOWN), UNK
     Dates: start: 20120101

REACTIONS (2)
  - BLOOD PRESSURE INCREASED [None]
  - CARDIOMEGALY [None]
